FAERS Safety Report 6327523-2 (Version None)
Quarter: 2009Q3

REPORT INFORMATION
  Report Type: 
  Country: None (occurrence: None)
  Receive Date: 20090825
  Receipt Date: 20090818
  Transmission Date: 20100115
  Serious: Yes (Other)
  Sender: FDA-Public Use
  Company Number: PHHY2009FR35085

PATIENT
  Age: 82 Year
  Sex: Female

DRUGS (3)
  1. AREDIA [Suspect]
     Indication: OSTEOPOROSIS
     Dosage: 60 MG/4H
     Dates: start: 20090601
  2. AREDIA [Suspect]
     Indication: HYPERAESTHESIA
  3. LIPANTHYL [Concomitant]

REACTIONS (2)
  - BONE PAIN [None]
  - SPINAL DISORDER [None]
